FAERS Safety Report 4864330-1 (Version None)
Quarter: 2005Q4

REPORT INFORMATION
  Report Type: 
  Country: None (occurrence: None)
  Receive Date: 20051222
  Receipt Date: 20051213
  Transmission Date: 20060501
  Serious: Yes (Other)
  Sender: FDA-Public Use
  Company Number: JP-MERCK-0512USA02820

PATIENT
  Age: 92 Year
  Sex: Male

DRUGS (2)
  1. PEPCID [Suspect]
     Route: 048
  2. ANPLAG [Suspect]
     Route: 048

REACTIONS (2)
  - COOMBS TEST POSITIVE [None]
  - HAEMOLYTIC ANAEMIA [None]
